FAERS Safety Report 9531243 (Version 1)
Quarter: 2013Q3

REPORT INFORMATION
  Report Type: Spontaneous
  Country: GB (occurrence: None)
  Receive Date: 20130916
  Receipt Date: 20130916
  Transmission Date: 20140515
  Serious: Yes (Death)
  Sender: FDA-Public Use
  Company Number: 1892701

PATIENT
  Age: 34 Year
  Sex: Female
  Weight: 90 kg

DRUGS (23)
  1. MIDAZOLAM [Suspect]
     Indication: SEDATION
     Dosage: DOSAGE FORM: UNSPECIFIED, FREQUENCY: CONSTANT (UNKNOWN)
     Route: 042
     Dates: start: 20130619
  2. FENTANYL [Suspect]
     Indication: SEDATION
     Route: 042
     Dates: start: 20130619
  3. BORTEZOMIB [Suspect]
     Indication: AMYLOIDOSIS
     Dosage: 2.6 MG, 1 WEEK, SUBCUTANEOUS
     Route: 058
     Dates: start: 20130614
  4. INSULIN HUMAN BIOSYNTHETIC [Concomitant]
  5. GLYCERIN / 01736901 [Concomitant]
  6. SODIUM ACID PHOSPHATE /00706601/ [Concomitant]
  7. AMOXICILLIN W/ CLAVULANATE POSTASSIUM [Concomitant]
  8. ENOXAPARIN [Concomitant]
  9. RAMIPRIL [Concomitant]
  10. SPIRONOLACTONE [Concomitant]
  11. ONDANSETRON [Concomitant]
  12. METOCLOPRAMIDE [Concomitant]
  13. CARVEDILOL [Concomitant]
  14. DEXAMETHASONE [Concomitant]
  15. LANSOPRAZOL [Concomitant]
  16. ALLOPURINOL [Concomitant]
  17. FUROSEMIDE [Concomitant]
  18. BISOPROLOL [Concomitant]
  19. TINZAPARIN [Concomitant]
  20. DOCUSATE SODIUM [Concomitant]
  21. MACROGOL W/ POTASSIUM CHLORIDE/ SODIUM BICARBON [Concomitant]
  22. SENNA /00142201/ [Concomitant]
  23. PARACETAMOL [Concomitant]

REACTIONS (5)
  - Cardiac arrest [None]
  - Cardiac output decreased [None]
  - Atrioventricular block complete [None]
  - Bradycardia [None]
  - Pulmonary embolism [None]
